FAERS Safety Report 23389258 (Version 1)
Quarter: 2024Q1

REPORT INFORMATION
  Report Type: Spontaneous
  Country: US (occurrence: US)
  Receive Date: 20240110
  Receipt Date: 20240110
  Transmission Date: 20240409
  Serious: No
  Sender: FDA-Public Use
  Company Number: US-REGENERON PHARMACEUTICALS, INC.-2022-156831

PATIENT
  Sex: Male

DRUGS (3)
  1. EYLEA [Suspect]
     Active Substance: AFLIBERCEPT
     Indication: Neovascular age-related macular degeneration
     Dosage: DOSE: 2 UNITS, ONCE EVERY 14 WEEKS, INTO RIGHT EYE (FORMULATION: GERRESHEIMER PFS)
     Dates: start: 20210701, end: 2022
  2. EYLEA [Suspect]
     Active Substance: AFLIBERCEPT
     Dosage: DOSE: 2 UNITS, ONCE EVERY 14 WEEKS, INTO RIGHT EYE (FORMULATION: GERRESHEIMER PFS)
     Dates: start: 20221208
  3. LORAZEPAM [Concomitant]
     Active Substance: LORAZEPAM
     Indication: Product used for unknown indication

REACTIONS (1)
  - Emotional distress [Not Recovered/Not Resolved]

NARRATIVE: CASE EVENT DATE: 20221130
